FAERS Safety Report 4605055-7 (Version None)
Quarter: 2005Q1

REPORT INFORMATION
  Report Type: 
  Country: None (occurrence: None)
  Receive Date: 20050217
  Receipt Date: 20041214
  Transmission Date: 20050727
  Serious: No
  Sender: FDA-Public Use
  Company Number: S04-USA-07805-01

PATIENT
  Age: 60 Year
  Sex: Female

DRUGS (6)
  1. NAMENDA [Suspect]
     Indication: EYE DISORDER
     Dosage: 10 MG QD PO
     Route: 048
     Dates: start: 20040901, end: 20041201
  2. NAMENDA [Suspect]
     Indication: EYE DISORDER
     Dosage: 20 MG QD PO
     Route: 048
     Dates: start: 20041201, end: 20041207
  3. NAMENDA [Suspect]
     Indication: EYE DISORDER
     Dosage: 10 MG QD PO
     Route: 048
     Dates: start: 20041208
  4. SYNTHROID [Concomitant]
  5. PROTONIX [Concomitant]
  6. HYDROXYZINE HCL (HYDROXYZINE HYDROCHLORIDE) [Concomitant]

REACTIONS (5)
  - ANXIETY [None]
  - BALANCE DISORDER [None]
  - CONSTIPATION [None]
  - DEPRESSION [None]
  - DIFFICULTY IN WALKING [None]
